FAERS Safety Report 22073598 (Version 2)
Quarter: 2023Q1

REPORT INFORMATION
  Report Type: Spontaneous
  Country: CA (occurrence: CA)
  Receive Date: 20230308
  Receipt Date: 20230327
  Transmission Date: 20230418
  Serious: Yes (Other)
  Sender: FDA-Public Use
  Company Number: CA-PFIZER INC-202300092099

PATIENT
  Age: 22 Year
  Sex: Female

DRUGS (1)
  1. ABRILADA [Suspect]
     Active Substance: ADALIMUMAB-AFZB
     Indication: Crohn^s disease
     Dosage: 1 DF WEEK 0 - 160 MG, WEEK 2 - 80 MG, THEN 40 MG EVERY OTHER WEEK STARTING WEEK 4
     Route: 058
     Dates: start: 20220719

REACTIONS (2)
  - Umbilical hernia [Recovering/Resolving]
  - Off label use [Unknown]
